FAERS Safety Report 18453925 (Version 2)
Quarter: 2020Q4

REPORT INFORMATION
  Report Type: Spontaneous
  Country: US (occurrence: US)
  Receive Date: 20201102
  Receipt Date: 20201125
  Transmission Date: 20210114
  Serious: Yes (Other)
  Sender: FDA-Public Use
  Company Number: US-ROCHE-2704245

PATIENT

DRUGS (2)
  1. VITAMIN B12 [Concomitant]
     Active Substance: CYANOCOBALAMIN
  2. OCREVUS [Suspect]
     Active Substance: OCRELIZUMAB
     Indication: PRIMARY PROGRESSIVE MULTIPLE SCLEROSIS
     Route: 065

REACTIONS (6)
  - Pancreatitis [Unknown]
  - Steatorrhoea [Unknown]
  - Weight decreased [Unknown]
  - Mouth ulceration [Unknown]
  - Urinary incontinence [Unknown]
  - Drug ineffective [Unknown]
